FAERS Safety Report 24410289 (Version 1)
Quarter: 2024Q4

REPORT INFORMATION
  Report Type: Spontaneous
  Country: IT (occurrence: IT)
  Receive Date: 20241008
  Receipt Date: 20241008
  Transmission Date: 20250115
  Serious: Yes (Death, Life-Threatening, Hospitalization, Other)
  Sender: RANBAXY
  Company Number: IT-EMA-DD-20240805-7482711-085910

PATIENT
  Age: 74 Year
  Sex: Male

DRUGS (3)
  1. CYCLOSPORINE [Suspect]
     Active Substance: CYCLOSPORINE
     Indication: Immunosuppressant drug therapy
     Dosage: UNK
     Route: 065
  2. EVEROLIMUS [Suspect]
     Active Substance: EVEROLIMUS
     Indication: Immunosuppressant drug therapy
     Dosage: UNK
     Route: 065
  3. LENVATINIB [Concomitant]
     Active Substance: LENVATINIB
     Indication: Anaplastic thyroid cancer
     Dosage: 14 MILLIGRAM
     Route: 065

REACTIONS (1)
  - Pneumonia [Fatal]
